FAERS Safety Report 17968854 (Version 1)
Quarter: 2020Q3

REPORT INFORMATION
  Report Type: Spontaneous
  Country: FR (occurrence: FR)
  Receive Date: 20200701
  Receipt Date: 20200701
  Transmission Date: 20201103
  Serious: Yes (Congenital Anomaly)
  Sender: FDA-Public Use
  Company Number: FR-TEVA-2020-FR-1792906

PATIENT
  Age: 36 Year
  Sex: Female

DRUGS (7)
  1. PROPRANOLOL (CHLORHYDRATE DE) [Suspect]
     Active Substance: PROPRANOLOL HYDROCHLORIDE
     Indication: HYPERTENSION
     Route: 064
  2. ORACILLINE [Suspect]
     Active Substance: PENICILLIN V
     Indication: PROPHYLAXIS
     Route: 064
  3. PROGRAF [Suspect]
     Active Substance: TACROLIMUS
     Indication: TRANSPLANT
     Route: 064
  4. MEDROL [Suspect]
     Active Substance: METHYLPREDNISOLONE
     Indication: TRANSPLANT
     Route: 064
  5. KARDEGIC [Suspect]
     Active Substance: ASPIRIN DL-LYSINE
     Indication: PRODUCT USED FOR UNKNOWN INDICATION
     Dosage: 75 MG
     Route: 064
  6. IMUREL [Suspect]
     Active Substance: AZATHIOPRINE SODIUM
     Indication: TRANSPLANT
     Route: 064
  7. COVERSYL [Suspect]
     Active Substance: PERINDOPRIL
     Indication: HYPERTENSION
     Route: 064
     Dates: end: 20200516

REACTIONS (2)
  - Kidney enlargement [Not Recovered/Not Resolved]
  - Oligohydramnios [Recovering/Resolving]

NARRATIVE: CASE EVENT DATE: 20200520
